FAERS Safety Report 8162717-5 (Version None)
Quarter: 2012Q1

REPORT INFORMATION
  Report Type: 
  Country: None (occurrence: None)
  Receive Date: 20120224
  Receipt Date: 20120215
  Transmission Date: 20120608
  Serious: Yes (Other)
  Sender: FDA-Public Use
  Company Number: FR-JNJFOC-20120210090

PATIENT
  Sex: Female

DRUGS (2)
  1. ACTIFED JOUR ET NUIT [Suspect]
     Indication: PRODUCT USED FOR UNKNOWN INDICATION
     Route: 048
  2. ACTIFED JOUR ET NUIT [Suspect]
     Route: 048

REACTIONS (2)
  - HYPERSENSITIVITY [None]
  - ANGIOEDEMA [None]
